FAERS Safety Report 4488185-2 (Version None)
Quarter: 2004Q4

REPORT INFORMATION
  Report Type: 
  Country: None (occurrence: None)
  Receive Date: 20041025
  Receipt Date: 20041015
  Transmission Date: 20050328
  Serious: Yes (Death)
  Sender: FDA-Public Use
  Company Number: 2004239213CN

PATIENT
  Age: 62 Year
  Sex: Male

DRUGS (3)
  1. FRAGMIN [Suspect]
     Indication: CEREBRAL INFARCTION
     Dosage: 5000 U, BID, SUBCUTANEOUS
     Route: 058
     Dates: start: 20040601, end: 20040610
  2. PIRACETAM [Concomitant]
  3. MECLOFENOXATE (MECLOFENOXATE) [Concomitant]

REACTIONS (2)
  - CEREBRAL HAEMORRHAGE [None]
  - CEREBRAL INFARCTION [None]
